FAERS Safety Report 12312044 (Version 1)
Quarter: 2016Q2

REPORT INFORMATION
  Report Type: Spontaneous
  Country: US (occurrence: US)
  Receive Date: 20160427
  Receipt Date: 20160427
  Transmission Date: 20160815
  Serious: No
  Sender: FDA-Public Use
  Company Number: US-TAKEDA-2016TUS007053

PATIENT
  Sex: Male
  Weight: 114.74 kg

DRUGS (2)
  1. ULORIC [Suspect]
     Active Substance: FEBUXOSTAT
     Indication: HYPERURICAEMIA
     Dosage: UNK
     Route: 065
     Dates: start: 201306
  2. ULORIC [Suspect]
     Active Substance: FEBUXOSTAT
     Dosage: 120 MG, UNK
     Route: 065

REACTIONS (2)
  - Gouty tophus [Not Recovered/Not Resolved]
  - Drug ineffective [Not Recovered/Not Resolved]
